FAERS Safety Report 9586918 (Version 1)
Quarter: 2013Q4

REPORT INFORMATION
  Report Type: Spontaneous
  Country: US (occurrence: US)
  Receive Date: 20131003
  Receipt Date: 20131003
  Transmission Date: 20140711
  Serious: No
  Sender: FDA-Public Use
  Company Number: US-B.I. PHARMACEUTICALS,INC./RIDGEFIELD-2013-BI-30195BP

PATIENT
  Age: 62 Year
  Sex: 0

DRUGS (19)
  1. GILOTRIF [Suspect]
     Indication: NON-SMALL CELL LUNG CANCER
     Dosage: 40 MG
     Route: 048
     Dates: start: 20130913
  2. FENTANYL PATCH [Concomitant]
  3. WELLBUTRIN [Concomitant]
  4. TRAZODONE [Concomitant]
  5. HYDROMORPHONE [Concomitant]
  6. MVI [Concomitant]
  7. PRILOSEC [Concomitant]
  8. CALCIUM [Concomitant]
  9. ZOLPIDEM [Concomitant]
  10. HYDROCODONE [Concomitant]
  11. COENZYME Q 10 [Concomitant]
  12. ROVASTATINA [Concomitant]
  13. LORAZEPAM [Concomitant]
  14. B COMPLEX [Concomitant]
  15. CHOLECALCIFEROL [Concomitant]
  16. ONDANSETRON [Concomitant]
  17. LEXAPRO [Concomitant]
  18. OMEGA 3 FISH OIL [Concomitant]
  19. BENADRYL [Concomitant]

REACTIONS (2)
  - Acne [Recovered/Resolved]
  - Increased appetite [Not Recovered/Not Resolved]
